FAERS Safety Report 23532995 (Version 1)
Quarter: 2024Q1

REPORT INFORMATION
  Report Type: Spontaneous
  Country: US (occurrence: None)
  Receive Date: 20240216
  Receipt Date: 20240216
  Transmission Date: 20240410
  Serious: Yes (Other)
  Sender: FDA-Public Use
  Company Number: None

PATIENT
  Age: 38 Year
  Sex: Female
  Weight: 72 kg

DRUGS (1)
  1. MOUNJARO [Suspect]
     Active Substance: TIRZEPATIDE

REACTIONS (6)
  - Pain [None]
  - Sensitive skin [None]
  - Drug ineffective [None]
  - Poor quality sleep [None]
  - Pain in extremity [None]
  - Lymph node pain [None]

NARRATIVE: CASE EVENT DATE: 20240215
